FAERS Safety Report 8523417-2 (Version None)
Quarter: 2012Q3

REPORT INFORMATION
  Report Type: 
  Country: None (occurrence: None)
  Receive Date: 20120720
  Receipt Date: 20120711
  Transmission Date: 20120928
  Serious: No
  Sender: FDA-Public Use
  Company Number: US-B.I. PHARMACEUTICALS,INC./RIDGEFIELD-2012-BP-15486BP

PATIENT
  Sex: Female

DRUGS (3)
  1. ZANTAC 150 [Suspect]
     Indication: DYSPEPSIA
     Dosage: 150 MG
     Route: 048
     Dates: start: 20120611
  2. CADUET [Concomitant]
     Indication: HYPERTENSION
     Dates: start: 20000101
  3. ACCUPRIL [Concomitant]
     Indication: HYPERTENSION
     Dates: start: 20000101

REACTIONS (1)
  - FLATULENCE [None]
